FAERS Safety Report 23440273 (Version 3)
Quarter: 2024Q2

REPORT INFORMATION
  Report Type: Spontaneous
  Country: US (occurrence: US)
  Receive Date: 20240124
  Receipt Date: 20240403
  Transmission Date: 20240717
  Serious: No
  Sender: FDA-Public Use
  Company Number: US-Blueprint Medicines Corporation-1984

PATIENT
  Sex: Female

DRUGS (4)
  1. AYVAKIT [Suspect]
     Active Substance: AVAPRITINIB
     Indication: Gastrointestinal stromal tumour
     Route: 065
     Dates: start: 20231118
  2. AYVAKIT [Suspect]
     Active Substance: AVAPRITINIB
     Route: 065
     Dates: start: 20231118
  3. AYVAKIT [Suspect]
     Active Substance: AVAPRITINIB
     Route: 048
  4. AYVAKIT [Suspect]
     Active Substance: AVAPRITINIB
     Route: 065

REACTIONS (10)
  - Tremor [Unknown]
  - Dizziness [Unknown]
  - Diarrhoea [Unknown]
  - Swelling face [Unknown]
  - Eye swelling [Unknown]
  - Fatigue [Unknown]
  - Headache [Unknown]
  - Adverse drug reaction [Unknown]
  - Nasopharyngitis [Unknown]
  - Illness [Unknown]
